FAERS Safety Report 25997810 (Version 1)
Quarter: 2025Q4

REPORT INFORMATION
  Report Type: Spontaneous
  Country: US (occurrence: US)
  Receive Date: 20251105
  Receipt Date: 20251105
  Transmission Date: 20260117
  Serious: Yes (Death, Life-Threatening, Hospitalization, Other)
  Sender: STRIDES
  Company Number: US-STRIDES ARCOLAB LIMITED-2025SP013722

PATIENT

DRUGS (1)
  1. AMLODIPINE [Suspect]
     Active Substance: AMLODIPINE BESYLATE
     Indication: Product used for unknown indication
     Dosage: 435 MILLIGRAMS, INGESTION
     Route: 048

REACTIONS (4)
  - Hypotension [Fatal]
  - Brain injury [Fatal]
  - Intentional product misuse [Unknown]
  - Intentional overdose [Unknown]
